FAERS Safety Report 6273374-7 (Version None)
Quarter: 2009Q3

REPORT INFORMATION
  Report Type: 
  Country: None (occurrence: None)
  Receive Date: 20090715
  Receipt Date: 20080908
  Transmission Date: 20100115
  Serious: Yes (Other)
  Sender: FDA-Public Use
  Company Number: 2008US002361

PATIENT
  Age: 71 Year
  Sex: Female
  Weight: 68.9 kg

DRUGS (1)
  1. ADENOSCAN [Suspect]
     Indication: SCAN MYOCARDIAL PERFUSION
     Dates: start: 20080906

REACTIONS (1)
  - ATRIOVENTRICULAR BLOCK [None]
